FAERS Safety Report 4979451-2 (Version None)
Quarter: 2006Q2

REPORT INFORMATION
  Report Type: 
  Country: None (occurrence: None)
  Receive Date: 20060421
  Receipt Date: 20050824
  Transmission Date: 20061013
  Serious: Yes (Death, Hospitalization, Other)
  Sender: FDA-Public Use
  Company Number: US-MERCK-0508USA04275

PATIENT
  Age: 72 Year
  Sex: Female
  Weight: 100 kg

DRUGS (2)
  1. VIOXX [Suspect]
     Indication: ARTHRITIS
     Route: 048
     Dates: start: 20010401, end: 20031112
  2. VIOXX [Suspect]
     Route: 048
     Dates: start: 20010401, end: 20031112

REACTIONS (27)
  - ASTHENIA [None]
  - BLOOD CREATINE PHOSPHOKINASE INCREASED [None]
  - BLOOD CREATINE PHOSPHOKINASE MB INCREASED [None]
  - BLUE TOE SYNDROME [None]
  - BUNDLE BRANCH BLOCK RIGHT [None]
  - CEREBRAL ATROPHY [None]
  - CEREBROVASCULAR ACCIDENT [None]
  - CONTUSION [None]
  - CONVULSION [None]
  - DEEP VEIN THROMBOSIS [None]
  - DEMENTIA [None]
  - DYSARTHRIA [None]
  - DYSPNOEA [None]
  - DYSURIA [None]
  - FALL [None]
  - GASTROINTESTINAL HAEMORRHAGE [None]
  - INSOMNIA [None]
  - LUMBAR SPINAL STENOSIS [None]
  - PULMONARY EMBOLISM [None]
  - RASH ERYTHEMATOUS [None]
  - RENAL DISORDER [None]
  - SKIN WARM [None]
  - SPINAL CLAUDICATION [None]
  - SPONDYLOLISTHESIS [None]
  - THYROID DISORDER [None]
  - TONGUE DRY [None]
  - URINARY TRACT INFECTION [None]
